FAERS Safety Report 7159074-X (Version None)
Quarter: 2010Q4

REPORT INFORMATION
  Report Type: 
  Country: None (occurrence: None)
  Receive Date: 20101130
  Receipt Date: 20101119
  Transmission Date: 20110411
  Serious: Yes (Hospitalization, Other)
  Sender: FDA-Public Use
  Company Number: 2010SP048463

PATIENT
  Age: 32 Year
  Sex: Female
  Weight: 56 kg

DRUGS (2)
  1. IMPLANON [Suspect]
     Indication: PRODUCT USED FOR UNKNOWN INDICATION
     Dosage: 1 DF
     Dates: start: 20090101
  2. COMBINED CONTRACEPTIVE PILL [Concomitant]

REACTIONS (2)
  - ECTOPIC PREGNANCY [None]
  - PREGNANCY WITH IMPLANT CONTRACEPTIVE [None]
